FAERS Safety Report 6425654-X (Version None)
Quarter: 2009Q4

REPORT INFORMATION
  Report Type: 
  Country: None (occurrence: None)
  Receive Date: 20091103
  Receipt Date: 20091019
  Transmission Date: 20100525
  Serious: Yes (Other)
  Sender: FDA-Public Use
  Company Number: CA-GENENTECH-285812

PATIENT
  Sex: Female
  Weight: 59 kg

DRUGS (3)
  1. XOLAIR [Suspect]
     Indication: ASTHMA
     Dosage: 300 MG, 1/MONTH
     Route: 058
     Dates: start: 20060704
  2. XOLAIR [Suspect]
     Dosage: 300 MG, 1/MONTH
     Route: 058
     Dates: start: 20090616
  3. XOLAIR [Suspect]
     Dosage: 300 MG, 1/MONTH
     Route: 058
     Dates: start: 20091019

REACTIONS (4)
  - BLOOD PRESSURE DECREASED [None]
  - BLOOD PRESSURE INCREASED [None]
  - LOWER LIMB FRACTURE [None]
  - RESPIRATORY TRACT CONGESTION [None]
